FAERS Safety Report 10885276 (Version 2)
Quarter: 2015Q1

REPORT INFORMATION
  Report Type: Spontaneous
  Country: US (occurrence: US)
  Receive Date: 20150304
  Receipt Date: 20150307
  Transmission Date: 20150721
  Serious: Yes (Other)
  Sender: FDA-Public Use
  Company Number: PHEH2015US003897

PATIENT
  Sex: Male

DRUGS (1)
  1. CLOZAPINE. [Suspect]
     Active Substance: CLOZAPINE
     Indication: PRODUCT USED FOR UNKNOWN INDICATION
     Route: 065

REACTIONS (6)
  - Bone marrow toxicity [Unknown]
  - White blood cell disorder [Unknown]
  - Renal disorder [Unknown]
  - Parkinson^s disease [Unknown]
  - Diabetes mellitus [Unknown]
  - Liver disorder [Unknown]
